FAERS Safety Report 8798370 (Version 2)
Quarter: 2012Q4

REPORT INFORMATION
  Report Type: Report from Study
  Country: AT (occurrence: AT)
  Receive Date: 20120920
  Receipt Date: 20121002
  Transmission Date: 20130627
  Serious: Yes (Hospitalization)
  Sender: FDA-Public Use
  Company Number: AT-AMGEN-AUTCT2012055606

PATIENT
  Age: 79 Year
  Sex: Female

DRUGS (2)
  1. DENOSUMAB [Suspect]
     Indication: BONE DENSITY DECREASED
     Dosage: 60 mg, UNK
     Dates: start: 20090512
  2. FEMARA [Concomitant]
     Dosage: 2.5 mg, qd
     Dates: start: 20080227

REACTIONS (1)
  - Cataract [Recovered/Resolved]
